FAERS Safety Report 15349831 (Version 1)
Quarter: 2018Q4

REPORT INFORMATION
  Report Type: Spontaneous
  Country: FR (occurrence: FR)
  Receive Date: 20180904
  Receipt Date: 20180904
  Transmission Date: 20190204
  Serious: Yes (Hospitalization)
  Sender: FDA-Public Use
  Company Number: PHHY2018FR084321

PATIENT
  Age: 78 Year
  Sex: Male

DRUGS (11)
  1. COUMADINE [Concomitant]
     Active Substance: WARFARIN SODIUM
     Indication: PULMONARY EMBOLISM
     Dosage: 4 MG, UNK (4 MG LE SOIR)
     Route: 048
     Dates: start: 2015, end: 20180608
  2. LOXEN (NICARDIPINE HYDROCHLORIDE) [Suspect]
     Active Substance: NICARDIPINE HYDROCHLORIDE
     Indication: HYPERTENSION
     Dosage: 20 MG SI TAS }160 MMHG
     Route: 048
     Dates: start: 20180621
  3. LOXEN LP [Suspect]
     Active Substance: NICARDIPINE HYDROCHLORIDE
     Indication: HYPERTENSION
     Dosage: 100 MG, QD
     Route: 048
     Dates: start: 20180516
  4. NICARDIPINE ARROW [Suspect]
     Active Substance: NICARDIPINE
     Indication: HYPERTENSION
     Dosage: 2 MG/H
     Route: 042
     Dates: start: 20180508, end: 20180522
  5. RILMENIDINE ARROW [Suspect]
     Active Substance: RILMENIDINE PHOSPHATE
     Indication: HYPERTENSION
     Dosage: 1 MG, QD
     Route: 048
     Dates: start: 20180618, end: 20180710
  6. HEPARINE SODIUM PANPHARMA [Suspect]
     Active Substance: HEPARIN SODIUM
     Indication: PULMONARY EMBOLISM
     Dosage: 400 IU/KG, QD
     Route: 042
     Dates: start: 20180621, end: 20180628
  7. CALCIPARINE [Suspect]
     Active Substance: HEPARIN CALCIUM
     Indication: PULMONARY EMBOLISM
     Dosage: 10000 IU, QD
     Route: 058
     Dates: start: 20180526, end: 20180621
  8. ALPRAZOLAM MYLAN [Suspect]
     Active Substance: ALPRAZOLAM
     Indication: ANXIETY
     Dosage: 12.25 MG, QD (SI BESOIN, 12.25 MG, PAS DE TRACE D^ADMINISTRATION JUSQU^AU 04/07)
     Route: 048
     Dates: start: 20180627, end: 20180710
  9. PAROXETINE ARROW [Suspect]
     Active Substance: PAROXETINE
     Indication: DEPRESSED MOOD
     Dosage: 10 MG, QD
     Route: 048
     Dates: start: 20180616, end: 20180710
  10. BISOPROLOL [Suspect]
     Active Substance: BISOPROLOL
     Indication: HYPERTENSION
     Dosage: 2.5 MG, QD ( 24 AU 30/05, 5 MG JUSQU^AU 19/06, 10 MG ENSUITE)
     Route: 048
     Dates: start: 20180524, end: 20180710
  11. RESIKALI [Suspect]
     Active Substance: CALCIUM POLYSTYRENE SULFONATE
     Indication: END STAGE RENAL DISEASE
     Dosage: 2 DF, QD (1 CUILL?RE MESURE MATIN ET SOIR)
     Route: 048
     Dates: start: 20180614

REACTIONS (1)
  - Rash maculo-papular [Recovered/Resolved]

NARRATIVE: CASE EVENT DATE: 20180709
